FAERS Safety Report 21768495 (Version 1)
Quarter: 2022Q4

REPORT INFORMATION
  Report Type: Spontaneous
  Country: US (occurrence: None)
  Receive Date: 20221221
  Receipt Date: 20221221
  Transmission Date: 20230112
  Serious: Yes (Other)
  Sender: FDA-Public Use
  Company Number: None

PATIENT
  Age: 34 Year
  Sex: Female

DRUGS (1)
  1. SOFOSBUVIR AND VELPATASVIR [Suspect]
     Active Substance: SOFOSBUVIR\VELPATASVIR
     Dosage: OTHER QUANTITY : 400MG/100MG;?FREQUENCY : DAILY;?
     Route: 048
     Dates: start: 20221201

REACTIONS (2)
  - Infection [None]
  - Laboratory test abnormal [None]

NARRATIVE: CASE EVENT DATE: 20221207
